FAERS Safety Report 20034536 (Version 1)
Quarter: 2021Q4

REPORT INFORMATION
  Report Type: Report from Study
  Country: US (occurrence: US)
  Receive Date: 20211104
  Receipt Date: 20211104
  Transmission Date: 20220303
  Serious: Yes (Hospitalization, Other)
  Sender: FDA-Public Use
  Company Number: US-JNJFOC-20211057961

PATIENT
  Age: 60 Year
  Sex: Female

DRUGS (27)
  1. STELARA [Suspect]
     Active Substance: USTEKINUMAB
     Indication: Product used for unknown indication
     Route: 058
  2. SIMPONI [Suspect]
     Active Substance: GOLIMUMAB
     Indication: Product used for unknown indication
     Route: 058
  3. REMICADE [Suspect]
     Active Substance: INFLIXIMAB
     Indication: Product used for unknown indication
     Route: 042
  4. XELJANZ [Suspect]
     Active Substance: TOFACITINIB CITRATE
     Indication: Product used for unknown indication
     Route: 065
  5. RINVOQ [Suspect]
     Active Substance: UPADACITINIB
     Indication: Rheumatoid arthritis
     Route: 048
     Dates: start: 20200413
  6. HUMIRA [Suspect]
     Active Substance: ADALIMUMAB
     Indication: Product used for unknown indication
     Route: 065
  7. HYDROXYCHLOROQUINE DIPHOSPHATE [Suspect]
     Active Substance: HYDROXYCHLOROQUINE DIPHOSPHATE
     Indication: Product used for unknown indication
     Route: 065
  8. ATORVASTATIN [Concomitant]
     Active Substance: ATORVASTATIN
  9. BETAMETHA [Concomitant]
  10. DIOVAN [Concomitant]
     Active Substance: VALSARTAN
  11. DOCUSATE SODIUM [Concomitant]
     Active Substance: DOCUSATE SODIUM
  12. EZETIMIBE [Concomitant]
     Active Substance: EZETIMIBE
  13. FERROUS SULFATE [Concomitant]
     Active Substance: FERROUS SULFATE
  14. FOLIC ACID [Concomitant]
     Active Substance: FOLIC ACID
  15. IODINE [Concomitant]
     Active Substance: IODINE
  16. KETOCONAZOLE [Concomitant]
     Active Substance: KETOCONAZOLE
  17. METHOTREXATE [Concomitant]
     Active Substance: METHOTREXATE
  18. METOPROLOL SUCCINATE [Concomitant]
     Active Substance: METOPROLOL SUCCINATE
  19. SELENIUM [Concomitant]
     Active Substance: SELENIUM
  20. SPIRONOLACTONE [Concomitant]
     Active Substance: SPIRONOLACTONE
  21. TIZANIDINE [Concomitant]
     Active Substance: TIZANIDINE
  22. TOPROL XL [Concomitant]
     Active Substance: METOPROLOL SUCCINATE
  23. TRIAMCINOLONE [Concomitant]
     Active Substance: TRIAMCINOLONE
  24. VALSARTAN [Concomitant]
     Active Substance: VALSARTAN
  25. ERGOCALCIFEROL [Concomitant]
     Active Substance: ERGOCALCIFEROL
  26. ZINC [Concomitant]
     Active Substance: ZINC
  27. VITAMIN C [Concomitant]
     Active Substance: ASCORBIC ACID

REACTIONS (5)
  - Systemic lupus erythematosus [Not Recovered/Not Resolved]
  - Hospitalisation [Not Recovered/Not Resolved]
  - Rheumatoid arthritis [Not Recovered/Not Resolved]
  - Therapeutic product effect incomplete [Not Recovered/Not Resolved]
  - Illness [Not Recovered/Not Resolved]

NARRATIVE: CASE EVENT DATE: 20210701
